FAERS Safety Report 13165658 (Version 6)
Quarter: 2019Q2

REPORT INFORMATION
  Report Type: Spontaneous
  Country: US (occurrence: US)
  Receive Date: 20170131
  Receipt Date: 20190409
  Transmission Date: 20190711
  Serious: Yes (Hospitalization, Other)
  Sender: FDA-Public Use
  Company Number: US-ASTRAZENECA-2017SE08132

PATIENT
  Age: 15800 Day
  Sex: Male
  Weight: 120.7 kg

DRUGS (30)
  1. NEXIUM 24HR [Suspect]
     Active Substance: ESOMEPRAZOLE MAGNESIUM
     Route: 048
     Dates: start: 2010, end: 2015
  2. ATORVASTATIN [Concomitant]
     Active Substance: ATORVASTATIN
  3. ISOSORBIDE MONONITRATE. [Concomitant]
     Active Substance: ISOSORBIDE MONONITRATE
  4. POTASSIUM CHLORIDE. [Concomitant]
     Active Substance: POTASSIUM CHLORIDE
  5. SENSIPAR [Concomitant]
     Active Substance: CINACALCET HYDROCHLORIDE
  6. GENTAMICIN. [Concomitant]
     Active Substance: GENTAMICIN
  7. AMLODIPINE [Concomitant]
     Active Substance: AMLODIPINE BESYLATE
  8. CLONIDINE. [Concomitant]
     Active Substance: CLONIDINE
  9. DOXAZOSIN [Concomitant]
     Active Substance: DOXAZOSIN\DOXAZOSIN MESYLATE
  10. METOLAZONE. [Concomitant]
     Active Substance: METOLAZONE
  11. LOSARTAN. [Concomitant]
     Active Substance: LOSARTAN
  12. PRILOSEC OTC [Suspect]
     Active Substance: OMEPRAZOLE MAGNESIUM
     Route: 048
     Dates: start: 2010, end: 2015
  13. ONGLYZA [Suspect]
     Active Substance: SAXAGLIPTIN HYDROCHLORIDE
     Indication: DIABETES MELLITUS
     Route: 065
     Dates: start: 2016
  14. CINACALCET. [Concomitant]
     Active Substance: CINACALCET
  15. HYDRALAZINE [Concomitant]
     Active Substance: HYDRALAZINE HYDROCHLORIDE
  16. BUMETANIDE. [Concomitant]
     Active Substance: BUMETANIDE
  17. LEVOFLOXACIN. [Concomitant]
     Active Substance: LEVOFLOXACIN
  18. SITAGLIPTIN [Concomitant]
     Active Substance: SITAGLIPTIN
  19. PRILOSEC [Suspect]
     Active Substance: OMEPRAZOLE MAGNESIUM
     Route: 048
  20. KOMBIGLYZE XR [Suspect]
     Active Substance: METFORMIN HYDROCHLORIDE\SAXAGLIPTIN HYDROCHLORIDE
     Indication: DIABETES MELLITUS
     Route: 048
     Dates: start: 2016, end: 2018
  21. ONGLYZA [Suspect]
     Active Substance: SAXAGLIPTIN HYDROCHLORIDE
     Indication: DIABETES MELLITUS
     Route: 048
     Dates: start: 20170119
  22. LANSOPRAZOLE. [Suspect]
     Active Substance: LANSOPRAZOLE
     Dosage: GENERIC
     Route: 065
     Dates: start: 20111228
  23. LASIX [Concomitant]
     Active Substance: FUROSEMIDE
  24. CARVEDILOL. [Concomitant]
     Active Substance: CARVEDILOL
  25. ONGLYZA [Suspect]
     Active Substance: SAXAGLIPTIN HYDROCHLORIDE
     Indication: DIABETES MELLITUS
     Route: 065
     Dates: start: 2016, end: 2018
  26. GABAPENTIN. [Concomitant]
     Active Substance: GABAPENTIN
  27. TRADJENTA [Concomitant]
     Active Substance: LINAGLIPTIN
  28. NEXIUM [Suspect]
     Active Substance: ESOMEPRAZOLE MAGNESIUM
     Route: 048
  29. VITAMIN D2 [Concomitant]
     Active Substance: ERGOCALCIFEROL
  30. INSULIN [Concomitant]
     Active Substance: INSULIN NOS

REACTIONS (10)
  - Chronic kidney disease [Not Recovered/Not Resolved]
  - Cardiac failure congestive [Unknown]
  - Nephrogenic anaemia [Unknown]
  - Hyperparathyroidism secondary [Unknown]
  - Tubulointerstitial nephritis [Unknown]
  - Cardiovascular disorder [Unknown]
  - Cardiac failure [Unknown]
  - Acute kidney injury [Not Recovered/Not Resolved]
  - Renal failure [Unknown]
  - End stage renal disease [Unknown]

NARRATIVE: CASE EVENT DATE: 20150501
